FAERS Safety Report 7166714-8 (Version None)
Quarter: 2010Q4

REPORT INFORMATION
  Report Type: 
  Country: None (occurrence: None)
  Receive Date: 20101216
  Receipt Date: 20101202
  Transmission Date: 20110411
  Serious: Yes (Hospitalization, Other)
  Sender: FDA-Public Use
  Company Number: US-ROCHE-724547

PATIENT
  Sex: Male
  Weight: 59 kg

DRUGS (3)
  1. ACCUTANE [Suspect]
     Indication: ACNE
     Dosage: OTHER INDICATION: PSORIASIS
     Route: 065
     Dates: start: 19950101, end: 19960101
  2. ACCUTANE [Suspect]
     Route: 065
     Dates: start: 19990101, end: 20000101
  3. KENALOG [Concomitant]
     Indication: PSORIASIS

REACTIONS (4)
  - CROHN'S DISEASE [None]
  - ILEAL STENOSIS [None]
  - INTESTINAL OBSTRUCTION [None]
  - SMALL INTESTINAL OBSTRUCTION [None]
